FAERS Safety Report 9508061 (Version 2)
Quarter: 2015Q2

REPORT INFORMATION
  Report Type: Spontaneous
  Country: DK (occurrence: DK)
  Receive Date: 20130909
  Receipt Date: 20150519
  Transmission Date: 20150821
  Serious: Yes (Hospitalization, Disabling)
  Sender: FDA-Public Use
  Company Number: PHHY2013DK095900

PATIENT
  Age: 44 Year
  Sex: Female

DRUGS (2)
  1. PULMICORT TURBUHALER [Concomitant]
     Active Substance: BUDESONIDE
     Indication: ASTHMA
     Route: 055
  2. MALONETTA [Suspect]
     Active Substance: ETHINYL ESTRADIOL\LEVONORGESTREL
     Indication: CONTRACEPTION
     Dosage: 1 DF, QD (0.15+0.03 MG)
     Route: 048
     Dates: start: 20130524, end: 20130814

REACTIONS (18)
  - Hyperaesthesia [Not Recovered/Not Resolved]
  - Agitation [Unknown]
  - Speech disorder [Unknown]
  - Hyperacusis [Unknown]
  - Motor dysfunction [Not Recovered/Not Resolved]
  - Learning disorder [Not Recovered/Not Resolved]
  - Disturbance in attention [Not Recovered/Not Resolved]
  - Sleep disorder [Unknown]
  - Dysphagia [Unknown]
  - Headache [Unknown]
  - Cerebrovascular accident [Recovered/Resolved with Sequelae]
  - Muscular weakness [Not Recovered/Not Resolved]
  - Fatigue [Not Recovered/Not Resolved]
  - Asthenia [Not Recovered/Not Resolved]
  - Memory impairment [Not Recovered/Not Resolved]
  - Discomfort [Unknown]
  - Visual impairment [Unknown]
  - Thrombotic cerebral infarction [Recovered/Resolved with Sequelae]

NARRATIVE: CASE EVENT DATE: 201308
